FAERS Safety Report 10929166 (Version 2)
Quarter: 2015Q2

REPORT INFORMATION
  Report Type: Spontaneous
  Country: US (occurrence: US)
  Receive Date: 20150319
  Receipt Date: 20150524
  Transmission Date: 20150821
  Serious: No
  Sender: FDA-Public Use
  Company Number: US-JNJFOC-20130210146

PATIENT
  Age: 11 Year
  Sex: Male

DRUGS (3)
  1. METHYLPHENIDATE HYDROCHLORIDE. [Suspect]
     Active Substance: METHYLPHENIDATE HYDROCHLORIDE
     Indication: ATTENTION DEFICIT/HYPERACTIVITY DISORDER
     Dosage: THE PATIENT TAKES 54MG+27MG AT THE MORNING AND 20MG AT THE EVENING
     Route: 048
  2. CONCERTA [Suspect]
     Active Substance: METHYLPHENIDATE HYDROCHLORIDE
     Indication: ATTENTION DEFICIT/HYPERACTIVITY DISORDER
     Dosage: 54 MG + 27 MG
     Route: 048
  3. INTUNIV [Concomitant]
     Active Substance: GUANFACINE HYDROCHLORIDE

REACTIONS (5)
  - Irritability [Unknown]
  - Impulsive behaviour [Unknown]
  - Incorrect dose administered [Unknown]
  - Tic [Unknown]
  - Emotional disorder [Unknown]
